FAERS Safety Report 5195300-4 (Version None)
Quarter: 2006Q4

REPORT INFORMATION
  Report Type: 
  Country: None (occurrence: None)
  Receive Date: 20061229
  Receipt Date: 20061211
  Transmission Date: 20070319
  Serious: Yes (Hospitalization)
  Sender: FDA-Public Use
  Company Number: JP-PFIZER INC-2006153293

PATIENT
  Age: 80 Year
  Sex: Male

DRUGS (2)
  1. ZYVOX [Suspect]
     Indication: STAPHYLOCOCCAL INFECTION
     Dosage: DAILY DOSE:1200MG
     Route: 042
     Dates: start: 20061207, end: 20061208
  2. VANCOMYCIN [Suspect]
     Indication: STAPHYLOCOCCAL INFECTION
     Route: 042

REACTIONS (3)
  - DIALYSIS [None]
  - RENAL FAILURE ACUTE [None]
  - URINARY TRACT INFECTION [None]
